FAERS Safety Report 7412563-2 (Version None)
Quarter: 2011Q2

REPORT INFORMATION
  Report Type: 
  Country: None (occurrence: None)
  Receive Date: 20110413
  Receipt Date: 20110408
  Transmission Date: 20111010
  Serious: Yes (Hospitalization)
  Sender: FDA-Public Use
  Company Number: AU-TEVA-275380ISR

PATIENT
  Sex: Female

DRUGS (4)
  1. DEXAMETHASONE [Suspect]
     Dates: start: 20110225
  2. LENALIDOMIDE [Suspect]
     Dosage: 10 MILLIGRAM;
     Route: 048
     Dates: start: 20110225
  3. DEXAMETHASONE [Suspect]
     Indication: MULTIPLE MYELOMA
     Route: 048
     Dates: start: 20100521
  4. LENALIDOMIDE [Suspect]
     Indication: MULTIPLE MYELOMA
     Route: 048
     Dates: start: 20100521

REACTIONS (1)
  - RENAL IMPAIRMENT [None]
